FAERS Safety Report 9417434 (Version 1)
Quarter: 2013Q3

REPORT INFORMATION
  Report Type: Spontaneous
  Country: US (occurrence: US)
  Receive Date: 20130724
  Receipt Date: 20130724
  Transmission Date: 20140515
  Serious: No
  Sender: FDA-Public Use
  Company Number: US-MYLANLABS-2013S1012474

PATIENT
  Age: 70 Year
  Sex: Male
  Weight: 108.86 kg

DRUGS (1)
  1. CLONIDINE TRANSDERMAL SYSTEM USP [Suspect]
     Indication: BLOOD PRESSURE INCREASED
     Route: 062
     Dates: start: 201209, end: 20121212

REACTIONS (2)
  - Application site pruritus [Recovered/Resolved]
  - Application site erythema [Recovered/Resolved]
